FAERS Safety Report 10608823 (Version 1)
Quarter: 2014Q4

REPORT INFORMATION
  Report Type: Spontaneous
  Country: US (occurrence: US)
  Receive Date: 20141125
  Receipt Date: 20141125
  Transmission Date: 20150529
  Serious: No
  Sender: FDA-Public Use
  Company Number: US-GLAXOSMITHKLINE-US2014GSK005225

PATIENT
  Sex: Female

DRUGS (1)
  1. FLOVENT DISKUS [Suspect]
     Active Substance: FLUTICASONE PROPIONATE
     Indication: PARANASAL SINUS HYPERSECRETION
     Dosage: 50 UG, U
     Route: 055
     Dates: start: 20140826

REACTIONS (2)
  - Drug ineffective [Unknown]
  - Off label use [Unknown]
